FAERS Safety Report 4633112-8 (Version None)
Quarter: 2005Q2

REPORT INFORMATION
  Report Type: 
  Country: None (occurrence: None)
  Receive Date: 20050412
  Receipt Date: 20050407
  Transmission Date: 20051028
  Serious: Yes (Other)
  Sender: FDA-Public Use
  Company Number: US-GLAXOSMITHKLINE-A0553220A

PATIENT
  Age: 61 Year
  Sex: Female

DRUGS (2)
  1. NAVELBINE [Suspect]
     Indication: ILL-DEFINED DISORDER
     Dosage: 45MG WEEKLY
     Route: 042
     Dates: start: 20041213
  2. NO CONCURRENT MEDICATION [Concomitant]

REACTIONS (1)
  - NEUROPATHY [None]
